FAERS Safety Report 6385587-4 (Version None)
Quarter: 2009Q4

REPORT INFORMATION
  Report Type: 
  Country: None (occurrence: None)
  Receive Date: 20091002
  Receipt Date: 20090921
  Transmission Date: 20100525
  Serious: Yes (Other)
  Sender: FDA-Public Use
  Company Number: DK-PFIZER INC-2009272631

PATIENT

DRUGS (1)
  1. PREGABALIN [Suspect]
     Indication: ANXIETY
     Dosage: UNK
     Dates: start: 20090101, end: 20090901

REACTIONS (2)
  - FACIAL PARESIS [None]
  - PARESIS [None]
